FAERS Safety Report 5642995-4 (Version None)
Quarter: 2008Q1

REPORT INFORMATION
  Report Type: 
  Country: None (occurrence: None)
  Receive Date: 20080228
  Receipt Date: 20080221
  Transmission Date: 20080703
  Serious: Yes (Hospitalization)
  Sender: FDA-Public Use
  Company Number: B0509095A

PATIENT
  Age: 71 Year
  Sex: Female
  Weight: 79.7 kg

DRUGS (5)
  1. ROSIGLITAZONE [Suspect]
     Indication: TYPE 2 DIABETES MELLITUS
     Route: 048
     Dates: start: 20070901, end: 20071204
  2. DOXAZOSIN MESYLATE [Concomitant]
     Indication: HYPERTENSION
     Dosage: 4MG PER DAY
     Route: 048
  3. GLICLAZIDE [Concomitant]
     Indication: DIABETES MELLITUS
     Dosage: 80MG PER DAY
     Route: 048
  4. METFORMIN HCL [Concomitant]
     Indication: DIABETES MELLITUS
     Dosage: 2G PER DAY
     Route: 048
  5. AMLODIPINE [Concomitant]
     Indication: HYPERTENSION
     Dosage: 10MG PER DAY
     Route: 048

REACTIONS (1)
  - PULMONARY OEDEMA [None]
